FAERS Safety Report 8335045-2 (Version None)
Quarter: 2012Q2

REPORT INFORMATION
  Report Type: 
  Country: None (occurrence: None)
  Receive Date: 20120503
  Receipt Date: 20100415
  Transmission Date: 20120825
  Serious: No
  Sender: FDA-Public Use
  Company Number: US-TEVA-2010002199

PATIENT
  Sex: Female
  Weight: 68.1 kg

DRUGS (5)
  1. MULTI-VITAMIN [Concomitant]
  2. ATACAND [Concomitant]
     Indication: HYPERTENSION
     Dates: start: 19950101
  3. NUVIGIL [Suspect]
     Indication: NARCOLEPSY
     Dosage: 100 MILLIGRAM;
     Route: 048
     Dates: start: 20100401, end: 20100401
  4. NUVIGIL [Suspect]
     Dosage: 250 MILLIGRAM;
     Route: 048
     Dates: start: 20100401
  5. ESTRACE [Concomitant]
     Indication: HORMONE REPLACEMENT THERAPY
     Dosage: 1 MILLIGRAM;
     Dates: start: 19940101

REACTIONS (1)
  - DRUG INEFFECTIVE [None]
